FAERS Safety Report 25432044 (Version 1)
Quarter: 2025Q2

REPORT INFORMATION
  Report Type: Spontaneous
  Country: MX (occurrence: MX)
  Receive Date: 20250613
  Receipt Date: 20250613
  Transmission Date: 20250717
  Serious: Yes (Hospitalization)
  Sender: NOVO NORDISK
  Company Number: MX-NOVOPROD-1454074

PATIENT
  Age: 60 Year
  Sex: Female
  Weight: 84.5 kg

DRUGS (7)
  1. WEGOVY [Suspect]
     Active Substance: SEMAGLUTIDE
     Indication: Hepatic steatosis
     Dosage: 0.25 MG, QW
     Route: 058
     Dates: start: 20250425
  2. WEGOVY [Suspect]
     Active Substance: SEMAGLUTIDE
     Route: 058
  3. EZETIMIBE\SIMVASTATIN [Concomitant]
     Active Substance: EZETIMIBE\SIMVASTATIN
     Indication: Hepatic steatosis
     Route: 048
  4. VITAMIN B3 [Concomitant]
     Active Substance: NIACIN
     Indication: Osteoarthritis
     Route: 048
  5. LEVOTHYROXINE SODIUM [Concomitant]
     Active Substance: LEVOTHYROXINE SODIUM
     Indication: Hypothyroidism
     Dosage: 50 MG, QD
     Route: 048
     Dates: start: 2013
  6. FISH OIL [Concomitant]
     Active Substance: FISH OIL
     Indication: Hepatic steatosis
  7. VARTALON [Concomitant]
     Indication: Osteoarthritis
     Route: 048

REACTIONS (2)
  - Dental implantation [Recovering/Resolving]
  - Product use in unapproved indication [Unknown]

NARRATIVE: CASE EVENT DATE: 20250505
